FAERS Safety Report 6032067-1 (Version None)
Quarter: 2009Q1

REPORT INFORMATION
  Report Type: 
  Country: None (occurrence: None)
  Receive Date: 20090107
  Receipt Date: 20081226
  Transmission Date: 20090719
  Serious: Yes (Death)
  Sender: FDA-Public Use
  Company Number: 2008US003514

PATIENT
  Age: 66 Year
  Sex: Male
  Weight: 45.6 kg

DRUGS (15)
  1. AMBISOME (AMBISOME) AMBISOME(AMPHOTERICIN B) [Suspect]
     Indication: BRONCHOPULMONARY ASPERGILLOSIS
     Dosage: 100 MG/KG UID/QD IV NOS
     Route: 042
     Dates: start: 20080409, end: 20080807
  2. CLARITHROMYCIN [Concomitant]
  3. MAGMITT (MAGNESIUM OXIDE) [Concomitant]
  4. ALOSENN (TARAXACUM OFFICINALE, RUBIA TICTORUM ROOT TINCTURE, ACHILLEA [Concomitant]
  5. VFEND [Concomitant]
  6. UNASYN [Concomitant]
  7. DALACIN ST [Concomitant]
  8. OMEGACIN (BIAPENEM) [Concomitant]
  9. OMEPRAL (OMEPRAZOLE SODIUM) [Concomitant]
  10. RED BLOOD CELLS [Concomitant]
  11. VASOLAN (ISOXUPRINE HYDROCHLORIDE) [Concomitant]
  12. DIGOXIN [Concomitant]
  13. ROCEPHIN [Concomitant]
  14. LASIX [Concomitant]
  15. KAKODIN (DOPAMINE HYDROCHLORIDE) [Concomitant]

REACTIONS (4)
  - ARRHYTHMIA [None]
  - CARDIAC FAILURE [None]
  - PNEUMONIA [None]
  - UPPER GASTROINTESTINAL HAEMORRHAGE [None]
